FAERS Safety Report 5359320-9 (Version None)
Quarter: 2007Q2

REPORT INFORMATION
  Report Type: 
  Country: None (occurrence: None)
  Receive Date: 20070615
  Receipt Date: 20070611
  Transmission Date: 20071010
  Serious: Yes (Death, Other)
  Sender: FDA-Public Use
  Company Number: BF-BOEHRINGER INGELHEIM PHARMACEUTICALS, INC.-2007-DE-03421GD

PATIENT

DRUGS (5)
  1. NEVIRAPINE [Suspect]
     Indication: HUMAN IMMUNODEFICIENCY VIRUS TRANSMISSION
     Route: 048
  2. NEVIRAPINE [Suspect]
     Indication: PROPHYLAXIS
     Route: 015
  3. LAMIVUDINE [Suspect]
     Route: 015
  4. ANTI-HIV AGENT [Suspect]
     Route: 015
  5. CHLOROQUINE [Concomitant]
     Route: 015

REACTIONS (3)
  - AMNIOTIC CAVITY DISORDER [None]
  - BACTERIAL DIARRHOEA [None]
  - PREMATURE BABY [None]
